FAERS Safety Report 18484121 (Version 3)
Quarter: 2021Q2

REPORT INFORMATION
  Report Type: Spontaneous
  Country: US (occurrence: US)
  Receive Date: 20201110
  Receipt Date: 20210511
  Transmission Date: 20210717
  Serious: No
  Sender: FDA-Public Use
  Company Number: US-BIOGEN-2020BI00935862

PATIENT
  Age: 50 Year
  Sex: Female

DRUGS (14)
  1. AMPYRA [Suspect]
     Active Substance: DALFAMPRIDINE
     Indication: GAIT DISTURBANCE
     Dosage: 10 MILLIGRAM, BID
     Route: 048
     Dates: start: 202006
  2. TECFIDERA [Suspect]
     Active Substance: DIMETHYL FUMARATE
     Dosage: MAINTENANCE DOSE
     Route: 048
  3. TECFIDERA [Suspect]
     Active Substance: DIMETHYL FUMARATE
     Indication: MULTIPLE SCLEROSIS
     Route: 048
     Dates: start: 202005
  4. TECFIDERA [Suspect]
     Active Substance: DIMETHYL FUMARATE
     Dosage: STARTING DOSE
     Route: 048
     Dates: start: 20200506
  5. ASPIRIN. [Concomitant]
     Active Substance: ASPIRIN
     Route: 065
  6. LYRICA [Concomitant]
     Active Substance: PREGABALIN
     Route: 065
  7. CYMBALTA [Concomitant]
     Active Substance: DULOXETINE HYDROCHLORIDE
     Route: 065
  8. MOTRIN [Concomitant]
     Active Substance: IBUPROFEN
     Route: 065
  9. DOCUSATE SODIUM. [Concomitant]
     Active Substance: DOCUSATE SODIUM
     Route: 065
  10. DALFAMPRIDINE. [Suspect]
     Active Substance: DALFAMPRIDINE
     Route: 065
  11. DALFAMPRIDINE. [Suspect]
     Active Substance: DALFAMPRIDINE
     Indication: GAIT DISTURBANCE
     Dosage: 10 MILLIGRAM, BID
     Route: 065
     Dates: start: 202008
  12. AMPYRA [Suspect]
     Active Substance: DALFAMPRIDINE
     Route: 065
  13. TYLENOL [Concomitant]
     Active Substance: ACETAMINOPHEN
     Route: 065
  14. MELATONIN [Concomitant]
     Active Substance: MELATONIN
     Route: 065

REACTIONS (16)
  - Abdominal distension [Recovered/Resolved]
  - Middle insomnia [Unknown]
  - Blood creatinine decreased [Recovered/Resolved]
  - Peripheral swelling [Recovered/Resolved]
  - Musculoskeletal disorder [Not Recovered/Not Resolved]
  - Hypoaesthesia [Not Recovered/Not Resolved]
  - Pain [Not Recovered/Not Resolved]
  - Headache [Unknown]
  - Amnesia [Not Recovered/Not Resolved]
  - Visual impairment [Unknown]
  - Condition aggravated [Recovered/Resolved]
  - Pain in extremity [Recovered/Resolved]
  - Abdominal pain upper [Recovered/Resolved]
  - Muscle spasms [Not Recovered/Not Resolved]
  - Limb discomfort [Not Recovered/Not Resolved]
  - Nausea [Unknown]

NARRATIVE: CASE EVENT DATE: 202010
